FAERS Safety Report 5247301-5 (Version None)
Quarter: 2007Q1

REPORT INFORMATION
  Report Type: 
  Country: None (occurrence: None)
  Receive Date: 20070223
  Receipt Date: 20070223
  Transmission Date: 20070707
  Serious: Yes (Other)
  Sender: FDA-Public Use
  Company Number: None

PATIENT
  Age: 25 Year
  Sex: Female
  Weight: 109 kg

DRUGS (11)
  1. NAFCILLIN SODIUM [Suspect]
     Indication: STAPHYLOCOCCAL BACTERAEMIA
     Dosage: 3 GRAMS  EVERY 6 HOURS  IV
     Route: 042
     Dates: start: 20070210, end: 20070215
  2. DOCUSATE [Concomitant]
  3. ENOXAPARIN SODIUM [Concomitant]
  4. ACETAMINOPHEN AND HYDROCODONE BITARTRATE [Concomitant]
  5. MORPHINE [Concomitant]
  6. PANTOPRAZOLE SODIUM [Concomitant]
  7. PROMETHAZINE [Concomitant]
  8. TRAZODONE HCL [Concomitant]
  9. VANCOMYCIN HYDROCHLORIDE [Concomitant]
  10. WARFARIN SODIUM [Concomitant]
  11. PIPERCILLIN/TAZOBACTAM [Concomitant]

REACTIONS (1)
  - BLOOD CREATININE INCREASED [None]
